FAERS Safety Report 5823054-4 (Version None)
Quarter: 2008Q3

REPORT INFORMATION
  Report Type: 
  Country: None (occurrence: None)
  Receive Date: 20080725
  Receipt Date: 20070817
  Transmission Date: 20090109
  Serious: No
  Sender: FDA-Public Use
  Company Number: US-AMGEN-KDL239869

PATIENT
  Sex: Female

DRUGS (10)
  1. PROCRIT [Suspect]
     Indication: ANAEMIA OF MALIGNANT DISEASE
     Route: 058
     Dates: start: 20070801
  2. NEUPOGEN [Suspect]
  3. DEXAMETHASONE [Concomitant]
  4. ATENOLOL [Concomitant]
  5. CARDIZEM [Concomitant]
  6. FUROSEMIDE [Concomitant]
  7. WARFARIN SODIUM [Concomitant]
  8. FOSAMAX [Concomitant]
  9. DIPHENOXYLATE HYDROCHLORIDE [Concomitant]
  10. ATROPINE SULFATE [Concomitant]

REACTIONS (2)
  - DEHYDRATION [None]
  - DIARRHOEA [None]
